FAERS Safety Report 22993388 (Version 2)
Quarter: 2024Q2

REPORT INFORMATION
  Report Type: Spontaneous
  Country: KR (occurrence: KR)
  Receive Date: 20230927
  Receipt Date: 20240627
  Transmission Date: 20240716
  Serious: Yes (Hospitalization)
  Sender: FDA-Public Use
  Company Number: KR-MYLANLABS-2023M1101775

PATIENT
  Age: 61 Year
  Sex: Male

DRUGS (2)
  1. VIAGRA [Suspect]
     Active Substance: SILDENAFIL CITRATE
     Indication: Product used for unknown indication
     Dosage: UNK, INGESTED MORE THAN 30 TABLETS OF SILDENAFIL (MORE THAN 1500MG SILDENAFIL)
     Route: 048
  2. ATORVASTATIN [Concomitant]
     Active Substance: ATORVASTATIN
     Indication: Dyslipidaemia
     Dosage: UNK
     Route: 065

REACTIONS (6)
  - Suicide attempt [Recovered/Resolved]
  - Cerebral infarction [Recovered/Resolved]
  - Rhabdomyolysis [Recovered/Resolved]
  - Confusional state [Recovered/Resolved]
  - Intentional overdose [Recovered/Resolved]
  - Toxicity to various agents [Recovered/Resolved]
